FAERS Safety Report 17610318 (Version 3)
Quarter: 2020Q2

REPORT INFORMATION
  Report Type: Report from Study
  Country: US (occurrence: US)
  Receive Date: 20200401
  Receipt Date: 20200623
  Transmission Date: 20200713
  Serious: Yes (Hospitalization, Other)
  Sender: FDA-Public Use
  Company Number: US-GILEAD-2020-0457231

PATIENT
  Age: 30 Year
  Sex: Female

DRUGS (1)
  1. AZTREONAM LYSINE [Suspect]
     Active Substance: AZTREONAM LYSINE
     Indication: CYSTIC FIBROSIS
     Dosage: UNK, TID FOR 28 DAYS ON AND 28 DAYS OFF
     Route: 065
     Dates: start: 20150708, end: 202002

REACTIONS (3)
  - Cystic fibrosis [Not Recovered/Not Resolved]
  - COVID-19 [Unknown]
  - Lung transplant [Unknown]

NARRATIVE: CASE EVENT DATE: 202003
